FAERS Safety Report 5249359-6 (Version None)
Quarter: 2007Q1

REPORT INFORMATION
  Report Type: 
  Country: None (occurrence: None)
  Receive Date: 20070228
  Receipt Date: 20060822
  Transmission Date: 20070707
  Serious: No
  Sender: FDA-Public Use
  Company Number: US-GLAXOSMITHKLINE-A0617689A

PATIENT
  Age: 24 Year
  Sex: Male

DRUGS (2)
  1. VALTREX [Suspect]
     Dosage: 1G TWICE PER DAY
     Route: 048
     Dates: start: 20060821
  2. NO CONCURRENT MEDICATION [Concomitant]

REACTIONS (1)
  - BACK PAIN [None]
